FAERS Safety Report 8202638-2 (Version None)
Quarter: 2012Q1

REPORT INFORMATION
  Report Type: 
  Country: None (occurrence: None)
  Receive Date: 20120312
  Receipt Date: 20120305
  Transmission Date: 20120608
  Serious: Yes (Other)
  Sender: FDA-Public Use
  Company Number: JP-PFIZER INC-2012058638

PATIENT
  Sex: Male

DRUGS (3)
  1. MIKERAN [Concomitant]
     Indication: GLAUCOMA
  2. XALATAN [Suspect]
     Indication: GLAUCOMA
     Dosage: 1 GTT, 1X/DAY
  3. LATANOPROST [Suspect]
     Indication: GLAUCOMA
     Dosage: 1 GTT, 1X/DAY

REACTIONS (4)
  - BLINDNESS [None]
  - EYE PAIN [None]
  - HYPOAESTHESIA EYE [None]
  - NERVOUSNESS [None]
